FAERS Safety Report 6282318-3 (Version None)
Quarter: 2009Q3

REPORT INFORMATION
  Report Type: 
  Country: None (occurrence: None)
  Receive Date: 20090722
  Receipt Date: 20090722
  Transmission Date: 20100115
  Serious: Yes (Disabling, Other)
  Sender: FDA-Public Use
  Company Number: None

PATIENT
  Sex: Male
  Weight: 65.7716 kg

DRUGS (2)
  1. HYDROCODONE BITARTRATE + ACETAMINOPHEN [Suspect]
     Indication: TOOTHACHE
     Dosage: 1 TAB BY MOUTH EVERY 4 TO 6 HOURS PO
     Route: 048
     Dates: start: 20080610, end: 20080611
  2. HYDROCODONE BITARTRATE + ACETAMINOPHEN [Suspect]
     Indication: TOOTHACHE
     Dosage: 1 TAB BY MOUTH EVERY 4 TO 6 HOURS
     Dates: start: 20090610, end: 20090611

REACTIONS (7)
  - CONSTIPATION [None]
  - DIARRHOEA [None]
  - DIVERTICULUM [None]
  - DRY MOUTH [None]
  - HYPERHIDROSIS [None]
  - NO THERAPEUTIC RESPONSE [None]
  - VERTIGO [None]
